FAERS Safety Report 7649095-2 (Version None)
Quarter: 2011Q3

REPORT INFORMATION
  Report Type: 
  Country: None (occurrence: None)
  Receive Date: 20110726
  Receipt Date: 20110711
  Transmission Date: 20111222
  Serious: Yes (Other)
  Sender: FDA-Public Use
  Company Number: AUR-APU-2011-04199

PATIENT
  Age: 68 Year
  Sex: Female

DRUGS (1)
  1. CIPROFLOXACIN [Suspect]
     Indication: CYSTITIS
     Dosage: (2 IN 1 D)

REACTIONS (6)
  - ARTHRALGIA [None]
  - VISION BLURRED [None]
  - PRODUCT SUBSTITUTION ISSUE [None]
  - BLADDER DISORDER [None]
  - NAUSEA [None]
  - MYALGIA [None]
